FAERS Safety Report 6999175-X (Version None)
Quarter: 2010Q3

REPORT INFORMATION
  Report Type: 
  Country: None (occurrence: None)
  Receive Date: 20100920
  Receipt Date: 20100112
  Transmission Date: 20110219
  Serious: No
  Sender: FDA-Public Use
  Company Number: US-ASTRAZENECA-2010SE01328

PATIENT
  Age: 39 Year
  Sex: Female
  Weight: 118.8 kg

DRUGS (6)
  1. SEROQUEL XR [Suspect]
     Indication: BIPOLAR I DISORDER
     Route: 048
  2. AZURE [Concomitant]
     Indication: HYPERTENSION
  3. BENCAR [Concomitant]
     Indication: HYPERTENSION
  4. IRON SUPPLIMENT [Concomitant]
  5. ASPIRIN [Concomitant]
  6. BIRTH CONTROL SHOT [Concomitant]

REACTIONS (6)
  - BLOOD PRESSURE INCREASED [None]
  - DRY MOUTH [None]
  - DYSPNOEA [None]
  - FATIGUE [None]
  - INCREASED APPETITE [None]
  - WEIGHT INCREASED [None]
